FAERS Safety Report 4976913-9 (Version None)
Quarter: 2006Q2

REPORT INFORMATION
  Report Type: 
  Country: None (occurrence: None)
  Receive Date: 20060413
  Receipt Date: 20060404
  Transmission Date: 20061013
  Serious: Yes (Death)
  Sender: FDA-Public Use
  Company Number: 2006S1000057

PATIENT
  Sex: 0

DRUGS (1)
  1. CUBICIN [Suspect]

REACTIONS (3)
  - BACTERIAL SEPSIS [None]
  - SUPERINFECTION [None]
  - URINARY TRACT INFECTION [None]
